FAERS Safety Report 4552859-5 (Version None)
Quarter: 2005Q1

REPORT INFORMATION
  Report Type: 
  Country: None (occurrence: None)
  Receive Date: 20050114
  Receipt Date: 20041014
  Transmission Date: 20050727
  Serious: Yes (Life-Threatening, Hospitalization, Disabling)
  Sender: FDA-Public Use
  Company Number: DE-MERCK-0410DEU00468

PATIENT
  Age: 55 Year
  Sex: Female
  Weight: 70 kg

DRUGS (10)
  1. VIOXX [Suspect]
     Indication: MUSCULOSKELETAL PAIN
     Route: 048
     Dates: start: 20020715, end: 20020813
  2. VIOXX [Suspect]
     Route: 048
     Dates: start: 20021129, end: 20030601
  3. PREDNISONE [Concomitant]
     Route: 048
     Dates: start: 20030508
  4. BISOPROLOL FUMARATE [Concomitant]
     Indication: TACHYCARDIA
     Route: 048
     Dates: start: 20020901
  5. PANTOPRAZOLE SODIUM [Concomitant]
     Route: 048
     Dates: start: 20021206
  6. HEPARIN [Concomitant]
     Route: 051
     Dates: start: 20020715, end: 20020807
  7. AMIKACIN SULFATE [Concomitant]
     Route: 048
     Dates: start: 20020813
  8. IBUPROFEN [Concomitant]
     Route: 048
     Dates: start: 20020821, end: 20020912
  9. GABAPENTIN [Concomitant]
     Indication: NEURALGIA
     Route: 048
     Dates: start: 20020606, end: 20040801
  10. ESOMEPRAZOLE MAGNESIUM [Concomitant]
     Route: 048
     Dates: start: 20010101

REACTIONS (3)
  - PHLEBOTHROMBOSIS [None]
  - PULMONARY EMBOLISM [None]
  - THROMBOSIS [None]
